FAERS Safety Report 9523560 (Version 3)
Quarter: 2013Q4

REPORT INFORMATION
  Report Type: Spontaneous
  Country: FI (occurrence: FI)
  Receive Date: 20130913
  Receipt Date: 20131104
  Transmission Date: 20140711
  Serious: Yes (Death)
  Sender: FDA-Public Use
  Company Number: PHHY2013FI100503

PATIENT
  Age: 37 Year
  Sex: Male

DRUGS (1)
  1. LINATIL COMP [Suspect]
     Indication: HYPERTENSION
     Dosage: 1 DF, DAILY
     Route: 048
     Dates: start: 201302

REACTIONS (2)
  - Dyspnoea [Fatal]
  - Pharyngeal oedema [Fatal]
